FAERS Safety Report 9732831 (Version 1)
Quarter: 2013Q4

REPORT INFORMATION
  Report Type: Spontaneous
  Country: US (occurrence: US)
  Receive Date: 20131204
  Receipt Date: 20131204
  Transmission Date: 20140711
  Serious: No
  Sender: FDA-Public Use
  Company Number: US-GILEAD-2009-0021164

PATIENT
  Sex: Female
  Weight: 56.7 kg

DRUGS (9)
  1. LETAIRIS [Suspect]
     Indication: PULMONARY ARTERIAL HYPERTENSION
     Route: 048
     Dates: start: 20081014
  2. COUMADIN [Concomitant]
  3. LASIX [Concomitant]
  4. DIOVAN [Concomitant]
  5. LOPRESSOR [Concomitant]
  6. LANOXIN [Concomitant]
  7. CRESTOR [Concomitant]
  8. POTASSIUM CHLORIDE [Concomitant]
  9. MULTIVITAMIN [Concomitant]

REACTIONS (1)
  - Fluid retention [Unknown]
